FAERS Safety Report 9879952 (Version 1)
Quarter: 2014Q1

REPORT INFORMATION
  Report Type: Report from Study
  Country: CO (occurrence: CO)
  Receive Date: 20140207
  Receipt Date: 20140207
  Transmission Date: 20141002
  Serious: Yes (Other)
  Sender: FDA-Public Use
  Company Number: CO-ROCHE-1344927

PATIENT
  Age: 82 Year
  Sex: Female
  Weight: 57 kg

DRUGS (5)
  1. LUCENTIS [Suspect]
     Indication: MACULAR DEGENERATION
     Dosage: IN RIGHT EYE
     Route: 050
  2. VERAPAMIL [Concomitant]
  3. CHLOROTHIAZIDE [Concomitant]
  4. ACETYLSALICYLIC ACID [Concomitant]
  5. LOVASTATIN [Concomitant]

REACTIONS (2)
  - Eye infection [Unknown]
  - Conjunctivitis [Recovering/Resolving]
